FAERS Safety Report 25432317 (Version 1)
Quarter: 2025Q2

REPORT INFORMATION
  Report Type: Spontaneous
  Country: NL (occurrence: NL)
  Receive Date: 20250613
  Receipt Date: 20250613
  Transmission Date: 20250716
  Serious: Yes (Other)
  Sender: ACCORD
  Company Number: None

PATIENT
  Age: 52 Year
  Sex: Female
  Weight: 65 kg

DRUGS (2)
  1. QUETIAPINE [Suspect]
     Active Substance: QUETIAPINE
     Indication: Bipolar disorder
     Dosage: STRENGTH: 200MG, 1X 100
     Dates: start: 20250508, end: 20250509
  2. QUETIAPINE [Suspect]
     Active Substance: QUETIAPINE
     Indication: Bipolar disorder
     Dosage: STRENGTH: 200MG, 1X 200 PER DAY
     Dates: start: 20250508, end: 20250509

REACTIONS (5)
  - Fatigue [Recovering/Resolving]
  - Dysarthria [Recovered/Resolved]
  - Electrocardiogram QT prolonged [Recovered/Resolved]
  - Limb discomfort [Recovering/Resolving]
  - Loss of consciousness [Recovering/Resolving]
